FAERS Safety Report 20785375 (Version 2)
Quarter: 2022Q2

REPORT INFORMATION
  Report Type: Spontaneous
  Country: US (occurrence: US)
  Receive Date: 20220504
  Receipt Date: 20220627
  Transmission Date: 20220720
  Serious: Yes (Death, Hospitalization, Other)
  Sender: FDA-Public Use
  Company Number: US-GILEAD-2022-0580272

PATIENT
  Age: 71 Year
  Sex: Male

DRUGS (2)
  1. YESCARTA [Suspect]
     Active Substance: AXICABTAGENE CILOLEUCEL
     Indication: Diffuse large B-cell lymphoma
     Dosage: MAX (2X10^8)
     Route: 042
     Dates: start: 20220323, end: 20220323
  2. YESCARTA [Suspect]
     Active Substance: AXICABTAGENE CILOLEUCEL
     Indication: Diffuse large B-cell lymphoma refractory

REACTIONS (14)
  - Death [Fatal]
  - Cardiac failure [Unknown]
  - Cytomegalovirus viraemia [Unknown]
  - Dysphagia [Unknown]
  - Pneumonia aspiration [Unknown]
  - Cytokine release syndrome [Recovered/Resolved]
  - Respiratory failure [Unknown]
  - Immune effector cell-associated neurotoxicity syndrome [Unknown]
  - Febrile neutropenia [Unknown]
  - Cytopenia [Unknown]
  - Cerebral haemorrhage [Unknown]
  - Hypothermia [Unknown]
  - Hypotension [Unknown]
  - Sepsis [Unknown]

NARRATIVE: CASE EVENT DATE: 20220101
